FAERS Safety Report 17095222 (Version 1)
Quarter: 2019Q4

REPORT INFORMATION
  Report Type: Spontaneous
  Country: US (occurrence: US)
  Receive Date: 20191104
  Receipt Date: 20191104
  Transmission Date: 20200122
  Serious: No
  Sender: FDA-Public Use
  Company Number: None

PATIENT
  Sex: Female

DRUGS (1)
  1. VITRAKVI [Suspect]
     Active Substance: LAROTRECTINIB
     Indication: UTERINE CANCER
     Route: 048
     Dates: start: 20191011

REACTIONS (6)
  - Sepsis [None]
  - Pulmonary oedema [None]
  - Fatigue [None]
  - Dizziness [None]
  - Abdominal distension [None]
  - Peripheral swelling [None]
